FAERS Safety Report 22143104 (Version 1)
Quarter: 2023Q1

REPORT INFORMATION
  Report Type: Spontaneous
  Country: US (occurrence: US)
  Receive Date: 20230327
  Receipt Date: 20230327
  Transmission Date: 20230418
  Serious: No
  Sender: FDA-Public Use
  Company Number: US-Santen Inc-2023-USA-001679

PATIENT
  Age: 21 Year
  Sex: Male

DRUGS (4)
  1. VERKAZIA [Suspect]
     Active Substance: CYCLOSPORINE
     Indication: Hypersensitivity
     Dosage: 1 GTT BID
     Route: 047
     Dates: start: 202210
  2. VERKAZIA [Suspect]
     Active Substance: CYCLOSPORINE
     Route: 047
  3. ALAWAY [Concomitant]
     Active Substance: KETOTIFEN FUMARATE
     Indication: Ocular hyperaemia
  4. ALAWAY [Concomitant]
     Active Substance: KETOTIFEN FUMARATE
     Indication: Eye irritation

REACTIONS (4)
  - Eye pain [Not Recovered/Not Resolved]
  - Eye irritation [Not Recovered/Not Resolved]
  - Ocular hyperaemia [Not Recovered/Not Resolved]
  - Off label use [Unknown]

NARRATIVE: CASE EVENT DATE: 20220501
